FAERS Safety Report 17107447 (Version 1)
Quarter: 2019Q4

REPORT INFORMATION
  Report Type: Spontaneous
  Country: JP (occurrence: JP)
  Receive Date: 20191203
  Receipt Date: 20191203
  Transmission Date: 20200122
  Serious: Yes (Other)
  Sender: FDA-Public Use
  Company Number: JP-JNJFOC-20190525729

PATIENT
  Age: 69 Year
  Sex: Male

DRUGS (2)
  1. WARFARIN [Suspect]
     Active Substance: WARFARIN
     Indication: ATRIAL FIBRILLATION
  2. RIVAROXABAN [Suspect]
     Active Substance: RIVAROXABAN
     Indication: ATRIAL FIBRILLATION
     Dosage: DAILY DOSE 15 MG
     Route: 048
     Dates: start: 20171004, end: 20190208

REACTIONS (4)
  - Vascular calcification [Recovered/Resolved]
  - Labelled drug-drug interaction medication error [Unknown]
  - Vascular rupture [Recovered/Resolved]
  - Internal haemorrhage [Recovered/Resolved]

NARRATIVE: CASE EVENT DATE: 20190208
